FAERS Safety Report 8249136-8 (Version None)
Quarter: 2012Q2

REPORT INFORMATION
  Report Type: 
  Country: None (occurrence: None)
  Receive Date: 20120402
  Receipt Date: 20120326
  Transmission Date: 20120825
  Serious: No
  Sender: FDA-Public Use
  Company Number: US-PFIZER INC-2012078557

PATIENT
  Sex: Female
  Weight: 57.143 kg

DRUGS (4)
  1. AMLODIPINE [Concomitant]
     Indication: HYPERTENSION
     Dosage: 5 MG, 1X/DAY
  2. BENAZEPRIL [Concomitant]
     Indication: HYPERTENSION
     Dosage: 20 MG, 1X/DAY
  3. TOVIAZ [Suspect]
     Indication: URINARY INCONTINENCE
     Dosage: 8 MG, 1X/DAY
     Dates: start: 20120201
  4. CHANTIX [Concomitant]
     Indication: SMOKING CESSATION THERAPY
     Dosage: UNK

REACTIONS (4)
  - DRY MOUTH [None]
  - DRUG INEFFECTIVE [None]
  - GASTRIC DISORDER [None]
  - ABDOMINAL DISCOMFORT [None]
